FAERS Safety Report 10830980 (Version 1)
Quarter: 2015Q1

REPORT INFORMATION
  Report Type: Report from Study
  Country: US (occurrence: US)
  Receive Date: 20150219
  Receipt Date: 20150219
  Transmission Date: 20150721
  Serious: No
  Sender: FDA-Public Use
  Company Number: US-ABBVIE-14P-163-1192756-00

PATIENT
  Age: 41 Year
  Sex: Female

DRUGS (5)
  1. HUMIRA [Suspect]
     Active Substance: ADALIMUMAB
     Indication: CROHN^S DISEASE
     Dates: start: 20131106, end: 20131106
  2. HUMIRA [Suspect]
     Active Substance: ADALIMUMAB
     Dates: start: 20131218, end: 20131218
  3. HUMIRA [Suspect]
     Active Substance: ADALIMUMAB
     Dates: start: 20131120, end: 20131120
  4. HUMIRA [Suspect]
     Active Substance: ADALIMUMAB
     Dates: start: 20131204, end: 20131204
  5. HUMIRA [Suspect]
     Active Substance: ADALIMUMAB
     Dates: start: 20140105

REACTIONS (8)
  - Headache [Not Recovered/Not Resolved]
  - Weight decreased [Not Recovered/Not Resolved]
  - Abdominal pain upper [Not Recovered/Not Resolved]
  - Respiratory tract congestion [Recovered/Resolved]
  - Insomnia [Not Recovered/Not Resolved]
  - Paraesthesia [Not Recovered/Not Resolved]
  - Hypoaesthesia [Not Recovered/Not Resolved]
  - Breast enlargement [Not Recovered/Not Resolved]

NARRATIVE: CASE EVENT DATE: 2013
